APPROVED DRUG PRODUCT: PREDNISOLONE SODIUM PHOSPHATE
Active Ingredient: PREDNISOLONE SODIUM PHOSPHATE
Strength: EQ 15MG BASE/5ML
Dosage Form/Route: SOLUTION;ORAL
Application: A078345 | Product #001
Applicant: AMNEAL PHARMACEUTICALS
Approved: Mar 10, 2009 | RLD: No | RS: No | Type: DISCN